FAERS Safety Report 4321800-2 (Version None)
Quarter: 2004Q1

REPORT INFORMATION
  Report Type: 
  Country: None (occurrence: None)
  Receive Date: 20040322
  Receipt Date: 20040109
  Transmission Date: 20041129
  Serious: No
  Sender: FDA-Public Use
  Company Number: US-BRISTOL-MYERS SQUIBB COMPANY-12480448

PATIENT
  Sex: Female

DRUGS (5)
  1. MONISTAT [Suspect]
     Indication: VAGINAL MYCOSIS
     Route: 067
     Dates: start: 20040109, end: 20040109
  2. SYNTHROID [Concomitant]
  3. EVISTA [Concomitant]
  4. CALCIUM [Concomitant]
  5. MULTI-VITAMINS [Concomitant]

REACTIONS (1)
  - GENITAL PRURITUS FEMALE [None]
